FAERS Safety Report 4364727-2 (Version None)
Quarter: 2004Q2

REPORT INFORMATION
  Report Type: 
  Country: None (occurrence: None)
  Receive Date: 20040518
  Receipt Date: 20040123
  Transmission Date: 20050107
  Serious: No
  Sender: FDA-Public Use
  Company Number: APP200400113(0)

PATIENT
  Age: 74 Year
  Sex: Male
  Weight: 92.9874 kg

DRUGS (38)
  1. VANCOMYCIN HYDROCHLORIDE [Suspect]
     Indication: PYREXIA
     Dosage: 1 GM (1 GM, 1 IN 1 D), INTRAVENOUS
     Route: 042
     Dates: start: 20031101, end: 20031114
  2. VANCOMYCIN HYDROCHLORIDE [Suspect]
  3. VANCOMYCIN HYDROCHLORIDE [Suspect]
  4. VANCOMYCIN HYDROCHLORIDE [Suspect]
  5. VANCOMYCIN HYDROCHLORIDE [Suspect]
  6. VANCOMYCIN HYDROCHLORIDE [Suspect]
  7. FLUCONAZOLE [Concomitant]
  8. PRIMAXIN (PRIMAXIN) [Concomitant]
  9. AMIODARONE HCL [Concomitant]
  10. SYNTHROID [Concomitant]
  11. LANOXIN [Concomitant]
  12. DILAUDID [Concomitant]
  13. PEPCID [Concomitant]
  14. LIPITOR [Concomitant]
  15. LISINOPRIL [Concomitant]
  16. INSULIN [Concomitant]
  17. XOPENEX (LEVOSALIBUTAMOL) [Concomitant]
  18. ATROVENT [Concomitant]
  19. CALCIUM CHLORIDE (CALCIUM CHLORIDE HEXAHYDRATE) [Concomitant]
  20. LASIX [Concomitant]
  21. BENADRYL (DIPPHENHYDRAMINE HYDROCHLORIDE) [Concomitant]
  22. BUMEX [Concomitant]
  23. DOPAMINE HCL [Concomitant]
  24. ZOSYN [Concomitant]
  25. VERSED (MIDAOLAM HYDROCHLORIDE) [Concomitant]
  26. CALCIUM GLUCONATE [Concomitant]
  27. REGLAN (METHOCLOPRAMIDE [Concomitant]
  28. TYLENOL [Concomitant]
  29. COUMADIN [Concomitant]
  30. TYLENOL [Concomitant]
  31. COUMADIN [Concomitant]
  32. OXYCONTIN (OXYCODONE HYDRCHLORIDE) [Concomitant]
  33. HALDOL (HALOPRERIDOL [Concomitant]
  34. IRON (IRON) [Concomitant]
  35. THIAMINE (THIAMINE) [Concomitant]
  36. FOLATE (FOLATE SODIUM) [Concomitant]
  37. VITAMIN B12 [Concomitant]
  38. LEVENOX (HEPARIN-FRACTION, SODIUM SALT) [Concomitant]

REACTIONS (1)
  - NEUTROPENIA [None]
